FAERS Safety Report 8831349 (Version 2)
Quarter: 2012Q4

REPORT INFORMATION
  Report Type: 
  Country: US (occurrence: US)
  Receive Date: 20121009
  Receipt Date: 20121016
  Transmission Date: 20130627
  Serious: Yes (Other)
  Sender: FDA-Public Use
  Company Number: US-BAYER-2012-103045

PATIENT
  Age: 33 Year
  Sex: Female

DRUGS (1)
  1. YASMIN [Suspect]
     Indication: CONTRACEPTION
     Dosage: 3mg/0.03mg, UNK
     Route: 048
     Dates: start: 2008

REACTIONS (2)
  - Trigeminal neuralgia [Not Recovered/Not Resolved]
  - Withdrawal bleed [Not Recovered/Not Resolved]
